FAERS Safety Report 19259226 (Version 1)
Quarter: 2021Q2

REPORT INFORMATION
  Report Type: Spontaneous
  Country: CN (occurrence: CN)
  Receive Date: 20210514
  Receipt Date: 20210514
  Transmission Date: 20210717
  Serious: Yes (Other)
  Sender: FDA-Public Use
  Company Number: CN-BAXTER-2021BAX010503

PATIENT
  Age: 54 Year
  Sex: Female
  Weight: 57.5 kg

DRUGS (16)
  1. 0.9% SODIUM CHLORIDE INJECTION [Suspect]
     Active Substance: SODIUM CHLORIDE
     Dosage: 6TH CHEMOTHERAPY, NS + CYCLOPHOSPHAMIDE 900 MG, FOR MORE THAN 1.5 HOURS
     Route: 041
     Dates: start: 20210316, end: 20210316
  2. 0.9% SODIUM CHLORIDE INJECTION [Suspect]
     Active Substance: SODIUM CHLORIDE
     Dosage: DOSE RE?INTRODUCED, NS + EPIRUBICIN HYDROCHLORIDE
     Route: 041
  3. EPIRUBICIN HYDROCHLORIDE. [Suspect]
     Active Substance: EPIRUBICIN HYDROCHLORIDE
     Indication: BREAST CANCER
     Dosage: 1ST TO 5TH CHEMOTHERAPIES, EPIRUBICIN HYDROCHLORIDE + NS
     Route: 041
  4. OMEPRAZOLE SODIUM [Concomitant]
     Active Substance: OMEPRAZOLE SODIUM
     Indication: ANTIEMETIC SUPPORTIVE CARE
     Dosage: LYOPHILIZED POWDER INJECTION, OMEPRAZOLE SODIUM + NS 100 ML
     Route: 041
     Dates: start: 20210316, end: 20210316
  5. NORMAL SALINE [Concomitant]
     Active Substance: SODIUM CHLORIDE
     Indication: MEDICATION DILUTION
     Dosage: NS + OMEPRAZOLE SODIUM 40 MG
     Route: 041
     Dates: start: 20210316, end: 20210316
  6. EPIRUBICIN HYDROCHLORIDE. [Suspect]
     Active Substance: EPIRUBICIN HYDROCHLORIDE
     Dosage: DOSE RE?INTRODUCED, EPIRUBICIN HYDROCHLORIDE + NS
     Route: 041
  7. ENDOXAN [Suspect]
     Active Substance: CYCLOPHOSPHAMIDE
     Dosage: 6TH CHEMOTHERAPY, CYCLOPHOSPHAMIDE + NS 250 ML, FOR MORE THAN 1.5 HOURS
     Route: 041
     Dates: start: 20210316, end: 20210316
  8. ENDOXAN [Suspect]
     Active Substance: CYCLOPHOSPHAMIDE
     Indication: BREAST CANCER
     Dosage: 1ST TO 5TH CHEMOTHERAPIES, CYCLOPHOSPHAMIDE + NS
     Route: 041
  9. 0.9% SODIUM CHLORIDE INJECTION [Suspect]
     Active Substance: SODIUM CHLORIDE
     Indication: MEDICATION DILUTION
     Dosage: 1ST TO 5TH CHEMOTHERAPIES, NS + CYCLOPHOSPHAMIDE
     Route: 041
  10. 0.9% SODIUM CHLORIDE INJECTION [Suspect]
     Active Substance: SODIUM CHLORIDE
     Dosage: 1ST TO 5TH CHEMOTHERAPIES, NS + EPIRUBICIN HYDROCHLORIDE
     Route: 041
  11. 0.9% SODIUM CHLORIDE INJECTION [Suspect]
     Active Substance: SODIUM CHLORIDE
     Dosage: DOSE RE?INTRODUCED, NS + CYCLOPHOSPHAMIDE
     Route: 041
  12. EPIRUBICIN HYDROCHLORIDE. [Suspect]
     Active Substance: EPIRUBICIN HYDROCHLORIDE
     Dosage: 6TH CHEMOTHERAPY, EPIRUBICIN HYDROCHLORIDE + NS 250 ML, FOR MORE THAN 1.5 HOURS
     Route: 041
     Dates: start: 20210316, end: 20210316
  13. 0.9% SODIUM CHLORIDE INJECTION [Suspect]
     Active Substance: SODIUM CHLORIDE
     Dosage: 6TH CHEMOTHERAPY, NS + EPIRUBICIN HYDROCHLORIDE 135 MG, FOR MORE THAN 1.5 HOURS
     Route: 041
     Dates: start: 20210316, end: 20210316
  14. NORMAL SALINE [Concomitant]
     Active Substance: SODIUM CHLORIDE
     Dosage: NS + ONDANSETRON HYDROCHLORIDE 8 MG
     Route: 040
     Dates: start: 20210316, end: 20210316
  15. ENDOXAN [Suspect]
     Active Substance: CYCLOPHOSPHAMIDE
     Dosage: DOSE RE?INTRODUCED, CYCLOPHOSPHAMIDE + NS
     Route: 041
  16. ONDANSETRON HYDROCHLORIDE. [Concomitant]
     Active Substance: ONDANSETRON HYDROCHLORIDE
     Indication: ANTIEMETIC SUPPORTIVE CARE
     Dosage: ONDANSETRON HYDROCHLORIDE + NS 10 ML
     Route: 040
     Dates: start: 20210316, end: 20210316

REACTIONS (4)
  - Nausea [Unknown]
  - Myelosuppression [Unknown]
  - Leukopenia [Recovering/Resolving]
  - Vomiting [Recovering/Resolving]

NARRATIVE: CASE EVENT DATE: 20210316
